FAERS Safety Report 7168345-2 (Version None)
Quarter: 2010Q4

REPORT INFORMATION
  Report Type: 
  Country: None (occurrence: None)
  Receive Date: 20101216
  Receipt Date: 20101208
  Transmission Date: 20110411
  Serious: Yes (Death, Life-Threatening, Hospitalization, Disabling)
  Sender: FDA-Public Use
  Company Number: US-MERCK-1012USA01729

PATIENT
  Age: 54 Year
  Sex: Male

DRUGS (4)
  1. DECADRON [Suspect]
     Indication: CHEMOTHERAPY
     Route: 048
     Dates: start: 20100707
  2. DECADRON [Suspect]
     Route: 048
     Dates: start: 20100701
  3. METOPROLOL [Concomitant]
     Route: 065
  4. CLONAZEPAM [Concomitant]
     Route: 065

REACTIONS (7)
  - CONVULSION [None]
  - DIABETES MELLITUS [None]
  - ENCEPHALITIS [None]
  - HEPATIC FAILURE [None]
  - LUNG CANCER METASTATIC [None]
  - METASTASES TO CENTRAL NERVOUS SYSTEM [None]
  - URINARY RETENTION [None]
